FAERS Safety Report 6111584-X (Version None)
Quarter: 2009Q1

REPORT INFORMATION
  Report Type: 
  Country: None (occurrence: None)
  Receive Date: 20090311
  Receipt Date: 20090304
  Transmission Date: 20090719
  Serious: Yes (Death, Hospitalization)
  Sender: FDA-Public Use
  Company Number: CH-AVENTIS-200911864GDDC

PATIENT
  Age: 70 Year
  Sex: Male
  Weight: 66 kg

DRUGS (3)
  1. TAXOTERE [Suspect]
     Dosage: DOSE: 90-110
     Route: 041
     Dates: start: 20081127, end: 20090108
  2. ZOMETA [Concomitant]
     Route: 042
  3. ARANESP [Concomitant]
     Route: 058

REACTIONS (1)
  - PULMONARY EMBOLISM [None]
